FAERS Safety Report 10395198 (Version 2)
Quarter: 2014Q3

REPORT INFORMATION
  Report Type: Spontaneous
  Country: GB (occurrence: GB)
  Receive Date: 20140820
  Receipt Date: 20140825
  Transmission Date: 20150326
  Serious: Yes (Other)
  Sender: FDA-Public Use
  Company Number: GB-ELI_LILLY_AND_COMPANY-GB201408003461

PATIENT
  Sex: Female

DRUGS (7)
  1. BISOPROLOL [Concomitant]
     Active Substance: BISOPROLOL
  2. HUMALOG [Suspect]
     Active Substance: INSULIN LISPRO
     Indication: DIABETES MELLITUS
     Dosage: 42 DF, EACH MORNING
     Route: 065
  3. HUMALOG [Suspect]
     Active Substance: INSULIN LISPRO
     Dosage: UNK UNK, EACH EVENING
     Route: 065
  4. RAMIPRIL. [Concomitant]
     Active Substance: RAMIPRIL
  5. HUMALOG [Suspect]
     Active Substance: INSULIN LISPRO
     Dosage: 32 DF, EACH EVENING
     Route: 065
  6. ASPIRIN. [Concomitant]
     Active Substance: ASPIRIN
  7. THYROXINE [Concomitant]
     Active Substance: LEVOTHYROXINE

REACTIONS (14)
  - Hypoglycaemia [Not Recovered/Not Resolved]
  - Blood glucose increased [Recovered/Resolved]
  - Myocardial infarction [Unknown]
  - Cholelithiasis [Not Recovered/Not Resolved]
  - Fatigue [Not Recovered/Not Resolved]
  - Constipation [Not Recovered/Not Resolved]
  - Anger [Not Recovered/Not Resolved]
  - Oedema [Not Recovered/Not Resolved]
  - Thyroid disorder [Not Recovered/Not Resolved]
  - Confusional state [Not Recovered/Not Resolved]
  - Rheumatoid arthritis [Not Recovered/Not Resolved]
  - Drug ineffective [Unknown]
  - Blood glucose abnormal [Not Recovered/Not Resolved]
  - Weight increased [Not Recovered/Not Resolved]

NARRATIVE: CASE EVENT DATE: 201310
